FAERS Safety Report 9523545 (Version 3)
Quarter: 2013Q4

REPORT INFORMATION
  Report Type: Spontaneous
  Country: US (occurrence: US)
  Receive Date: 20130913
  Receipt Date: 20131016
  Transmission Date: 20140711
  Serious: No
  Sender: FDA-Public Use
  Company Number: US-BAXTER-2013BAX035153

PATIENT
  Age: 54 Year
  Sex: Female
  Weight: 80.5 kg

DRUGS (3)
  1. GAMMAGARD LIQUID [Suspect]
     Indication: SELECTIVE IGG SUBCLASS DEFICIENCY
     Dosage: 2 TOTAL DOSES
     Route: 058
     Dates: start: 201308, end: 20130830
  2. ADVAIR HFA [Concomitant]
     Indication: PRODUCT USED FOR UNKNOWN INDICATION
     Dosage: 230 MCG-21 MCG, INHALE 2 PUFFS EVERY MORNING AND EVENING
  3. COMBIVENT [Concomitant]
     Indication: PRODUCT USED FOR UNKNOWN INDICATION
     Dosage: 18 MCG-103 MCG, INHALE 2 PUFFS EVERY 4 HOURS AS NEEDED

REACTIONS (2)
  - Hypersensitivity [Recovered/Resolved]
  - Joint swelling [Recovered/Resolved]
